FAERS Safety Report 10196482 (Version 2)
Quarter: 2014Q2

REPORT INFORMATION
  Report Type: Spontaneous
  Country: US (occurrence: None)
  Receive Date: 20140522
  Receipt Date: 20140624
  Transmission Date: 20141212
  Serious: Yes (Hospitalization)
  Sender: FDA-Public Use
  Company Number: AUR-APL-2014-05906

PATIENT
  Age: 15 Year
  Sex: Female

DRUGS (3)
  1. NEVIRAPINE [Suspect]
     Indication: ANTIRETROVIRAL THERAPY
  2. RALTEGRAVIR [Suspect]
     Indication: ANTIRETROVIRAL THERAPY
  3. TRUVADA [Suspect]
     Indication: ANTIRETROVIRAL THERAPY

REACTIONS (6)
  - Immune reconstitution inflammatory syndrome [None]
  - Dysarthria [None]
  - Condition aggravated [None]
  - Aspiration [None]
  - Nuclear magnetic resonance imaging abnormal [None]
  - Dysphagia [None]
